FAERS Safety Report 8784419 (Version 1)
Quarter: 2012Q4

REPORT INFORMATION
  Report Type: 
  Country: US (occurrence: US)
  Receive Date: 20120913
  Receipt Date: 20120913
  Transmission Date: 20130627
  Serious: No
  Sender: FDA-Public Use
  Company Number: US-PFIZER INC-2012223094

PATIENT
  Age: 38 Year
  Sex: Male
  Weight: 97.5 kg

DRUGS (5)
  1. LYRICA [Suspect]
     Indication: STIFF PERSON SYNDROME
     Dosage: 200 mg, 2x/day
     Route: 048
     Dates: start: 2006
  2. PRISTIQ [Concomitant]
     Dosage: UNK
  3. PROTONIX [Concomitant]
     Dosage: UNK
  4. NORVASC [Concomitant]
     Dosage: UNK
  5. CELEBREX [Concomitant]
     Dosage: UNK

REACTIONS (3)
  - Off label use [Unknown]
  - Musculoskeletal stiffness [Unknown]
  - Pain [Unknown]
